FAERS Safety Report 11638194 (Version 3)
Quarter: 2016Q1

REPORT INFORMATION
  Report Type: Report from Study
  Country: JP (occurrence: JP)
  Receive Date: 20151016
  Receipt Date: 20160229
  Transmission Date: 20160525
  Serious: Yes (Death, Life-Threatening)
  Sender: FDA-Public Use
  Company Number: JP-009507513-1510JPN007236

PATIENT
  Age: 71 Year
  Sex: Male
  Weight: 59 kg

DRUGS (6)
  1. FINIBAX [Concomitant]
     Active Substance: DORIPENEM MONOHYDRATE
     Dosage: 0.5 G, TID
     Route: 051
     Dates: start: 20150723, end: 20150812
  2. ELNEOPA NO. 1 [Concomitant]
     Indication: NUTRITIONAL SUPPLEMENTATION
     Dosage: 1.5 L, QD
     Route: 051
     Dates: start: 20150723, end: 20150820
  3. CUBICIN [Suspect]
     Active Substance: DAPTOMYCIN
     Indication: SKIN INFECTION
     Dosage: 4 MG/KG, QD
     Route: 041
     Dates: start: 20150723, end: 20150812
  4. FAMOTIDINE. [Concomitant]
     Active Substance: FAMOTIDINE
     Dosage: 20 MG, BID
     Route: 051
     Dates: start: 20150723, end: 20150807
  5. BICANATE [Concomitant]
     Dosage: 1 L, QD
     Route: 051
     Dates: start: 20150723, end: 20150820
  6. FUROSEMIDE. [Concomitant]
     Active Substance: FUROSEMIDE
     Indication: PROPHYLAXIS
     Dosage: 20 MG, QD
     Route: 051
     Dates: start: 20150723, end: 20150807

REACTIONS (7)
  - Ascites [Not Recovered/Not Resolved]
  - Acute kidney injury [Fatal]
  - Gastrointestinal haemorrhage [Unknown]
  - Superinfection [Unknown]
  - Multiple organ dysfunction syndrome [Fatal]
  - Septic shock [Fatal]
  - Acute respiratory failure [Fatal]

NARRATIVE: CASE EVENT DATE: 2015
